FAERS Safety Report 15100534 (Version 1)
Quarter: 2018Q3

REPORT INFORMATION
  Report Type: Spontaneous
  Country: US (occurrence: US)
  Receive Date: 20180703
  Receipt Date: 20180703
  Transmission Date: 20181010
  Serious: Yes (Hospitalization, Other)
  Sender: FDA-Public Use
  Company Number: US-AMGEN-USASP2018087641

PATIENT
  Age: 72 Year
  Sex: Female
  Weight: 42.18 kg

DRUGS (1)
  1. ENBREL [Suspect]
     Active Substance: ETANERCEPT
     Indication: RHEUMATOID ARTHRITIS
     Dosage: 50 MG, QWK
     Route: 065
     Dates: start: 201710, end: 201805

REACTIONS (7)
  - Diverticulitis intestinal haemorrhagic [Unknown]
  - Pulmonary haemorrhage [Unknown]
  - Weight decreased [Unknown]
  - Respiratory tract congestion [Unknown]
  - Haemoptysis [Unknown]
  - Pneumonia [Unknown]
  - Drug hypersensitivity [Unknown]

NARRATIVE: CASE EVENT DATE: 201711
